FAERS Safety Report 5865410-4 (Version None)
Quarter: 2008Q3

REPORT INFORMATION
  Report Type: 
  Country: None (occurrence: None)
  Receive Date: 20080829
  Receipt Date: 20080827
  Transmission Date: 20090109
  Serious: Yes (Hospitalization)
  Sender: FDA-Public Use
  Company Number: US-ABBOTT-08P-163-0472819-00

PATIENT
  Sex: Female
  Weight: 49.486 kg

DRUGS (4)
  1. HUMIRA [Suspect]
     Indication: RHEUMATOID ARTHRITIS
     Route: 050
     Dates: start: 20050101
  2. ZELANON [Concomitant]
     Indication: COELIAC DISEASE
  3. HYDROXYCHLOROQUINE [Concomitant]
     Indication: RHEUMATOID ARTHRITIS
     Route: 048
  4. ACETYLSALICYLIC ACID SRT [Concomitant]
     Indication: ANTICOAGULANT THERAPY
     Dosage: 1/2 325 MG PILL
     Route: 048

REACTIONS (4)
  - ARTHRALGIA [None]
  - FINGER DEFORMITY [None]
  - HERPES ZOSTER [None]
  - INJECTION SITE HAEMATOMA [None]
